FAERS Safety Report 5620081-7 (Version None)
Quarter: 2008Q1

REPORT INFORMATION
  Report Type: 
  Country: None (occurrence: None)
  Receive Date: 20080208
  Receipt Date: 20080131
  Transmission Date: 20080703
  Serious: Yes (Hospitalization)
  Sender: FDA-Public Use
  Company Number: US-ASTRAZENECA-2008UW02322

PATIENT
  Age: 22 Year
  Sex: Female

DRUGS (1)
  1. SEROQUEL [Suspect]
     Route: 048
     Dates: end: 20080101

REACTIONS (4)
  - ABNORMAL BEHAVIOUR [None]
  - DRY MOUTH [None]
  - HEART RATE INCREASED [None]
  - MYDRIASIS [None]
